FAERS Safety Report 25022706 (Version 1)
Quarter: 2025Q1

REPORT INFORMATION
  Report Type: Spontaneous
  Country: US (occurrence: US)
  Receive Date: 20250228
  Receipt Date: 20250228
  Transmission Date: 20250408
  Serious: Yes (Other)
  Sender: MYLAN
  Company Number: US-MYLANLABS-2025M1016905

PATIENT

DRUGS (1)
  1. LEVOTHYROXINE SODIUM [Suspect]
     Active Substance: LEVOTHYROXINE SODIUM
     Indication: Product used for unknown indication

REACTIONS (7)
  - Thyrotoxic crisis [Unknown]
  - Extrasystoles [Unknown]
  - Fall [Unknown]
  - Feeling abnormal [Unknown]
  - Mental disorder [Unknown]
  - Recalled product [Unknown]
  - Recalled product administered [Unknown]
